FAERS Safety Report 6832061-4 (Version None)
Quarter: 2010Q3

REPORT INFORMATION
  Report Type: 
  Country: None (occurrence: None)
  Receive Date: 20100712
  Receipt Date: 20100706
  Transmission Date: 20110219
  Serious: Yes (Life-Threatening, Disabling)
  Sender: FDA-Public Use
  Company Number: CN-ROCHE-713509

PATIENT
  Sex: Female
  Weight: 50 kg

DRUGS (3)
  1. CAPECITABINE [Suspect]
     Indication: GASTRIC CANCER
     Dosage: FREQUENCY: DAY 1 TO DAY 14, LAST DOSE PRIOR TO SAE: 23 JUNE 2010, ROUTE REPORTER AS: 'BID PO'
     Route: 048
     Dates: start: 20091030
  2. BLINDED BEVACIZUMAB [Suspect]
     Indication: GASTRIC CANCER
     Dosage: FROM: INFUSION, DOSE BLINDED, EMERGENCY CODE BROKEN: YES, LAST DOSE PRIOR TO SAE: 09 JUNE 2010
     Route: 042
     Dates: start: 20091030
  3. CISPLATIN [Suspect]
     Indication: GASTRIC CANCER
     Dosage: LAST DOSE PRIOR TO SAE: 09 JUNE 2010, FORM: INFUSION
     Route: 042
     Dates: start: 20091030

REACTIONS (1)
  - CRANIAL NERVE DISORDER [None]
